FAERS Safety Report 25149184 (Version 1)
Quarter: 2025Q2

REPORT INFORMATION
  Report Type: Spontaneous
  Country: FR (occurrence: FR)
  Receive Date: 20250402
  Receipt Date: 20250402
  Transmission Date: 20250716
  Serious: Yes (Hospitalization)
  Sender: CHEPLAPHARM
  Company Number: None

PATIENT
  Age: 65 Year
  Sex: Female
  Weight: 73 kg

DRUGS (16)
  1. OLANZAPINE [Suspect]
     Active Substance: OLANZAPINE
     Route: 048
     Dates: start: 20250201, end: 20250201
  2. VALPROATE SODIUM [Suspect]
     Active Substance: VALPROATE SODIUM
     Route: 048
     Dates: start: 20250201, end: 20250201
  3. DIAZEPAM [Suspect]
     Active Substance: DIAZEPAM
     Route: 048
     Dates: start: 20250201, end: 20250201
  4. TROPATEPINE HYDROCHLORIDE [Suspect]
     Active Substance: TROPATEPINE HYDROCHLORIDE
     Route: 048
     Dates: start: 20250201, end: 20250201
  5. LOXAPINE [Suspect]
     Active Substance: LOXAPINE
     Route: 048
     Dates: start: 20250201, end: 20250201
  6. LOXAPINE [Suspect]
     Active Substance: LOXAPINE
     Route: 048
     Dates: start: 20250201, end: 20250201
  7. POLYETHYLENE GLYCOLS [Concomitant]
     Active Substance: POLYETHYLENE GLYCOLS
  8. ESCITALOPRAM [Concomitant]
     Active Substance: ESCITALOPRAM OXALATE
     Dosage: ESCITALOPRAM 10 MG 1 IN THE MORNING?DAILY DOSE: 10 MILLIGRAM
  9. LAMICTAL [Concomitant]
     Active Substance: LAMOTRIGINE
  10. LAMICTAL [Concomitant]
     Active Substance: LAMOTRIGINE
  11. MIDODRINE [Concomitant]
     Active Substance: MIDODRINE
  12. CALCIUM CARBONATE [Concomitant]
     Active Substance: CALCIUM CARBONATE
  13. TEGRETOL [Concomitant]
     Active Substance: CARBAMAZEPINE
  14. ATORVASTATIN [Concomitant]
     Active Substance: ATORVASTATIN
     Dosage: ATORVASTATIN 10 MG 1 EVENING?DAILY DOSE: 10 MILLIGRAM
  15. FESOTERODINE [Concomitant]
     Active Substance: FESOTERODINE
     Dosage: FESOTERODINE 4 MG 1 EVENING?DAILY DOSE: 4 MILLIGRAM
  16. OMEPRAZOLE [Concomitant]
     Active Substance: OMEPRAZOLE
     Dosage: OMEPRAZOLE 20 MG 1 EVENING ?DAILY DOSE: 20 MILLIGRAM

REACTIONS (3)
  - Wrong patient received product [Recovered/Resolved]
  - Hypotension [Recovered/Resolved]
  - Gait disturbance [Unknown]

NARRATIVE: CASE EVENT DATE: 20250201
